FAERS Safety Report 9114420 (Version 1)
Quarter: 2013Q1

REPORT INFORMATION
  Report Type: Spontaneous
  Country: BR (occurrence: BR)
  Receive Date: 20130208
  Receipt Date: 20130208
  Transmission Date: 20140127
  Serious: Yes (Death, Hospitalization, Other)
  Sender: FDA-Public Use
  Company Number: PHHY2013BR011975

PATIENT
  Sex: Female

DRUGS (1)
  1. DIOVAN HCT [Suspect]
     Indication: BLOOD PRESSURE ABNORMAL
     Dosage: 1 DF QD (320 MG VALS AND 12.5 MG HYDRO), DAILY
     Route: 048

REACTIONS (6)
  - Multi-organ failure [Fatal]
  - Pneumonia [Unknown]
  - Dyspnoea [Unknown]
  - Dehydration [Unknown]
  - Asthenia [Unknown]
  - Blood potassium decreased [Unknown]
